FAERS Safety Report 8474445-7 (Version None)
Quarter: 2012Q2

REPORT INFORMATION
  Report Type: 
  Country: None (occurrence: None)
  Receive Date: 20120628
  Receipt Date: 20120623
  Transmission Date: 20120825
  Serious: Yes (Other)
  Sender: FDA-Public Use
  Company Number: PHHY2012MX037483

PATIENT
  Sex: Female

DRUGS (7)
  1. ROCALTROL [Concomitant]
  2. IBUPROFEN [Concomitant]
     Dosage: EVERY 8 HOUR
  3. ZOLEDRONOC ACID [Suspect]
     Indication: OSTEOPOROSIS
     Dosage: 5 MG/100 ML, EACH YEAR
     Route: 042
     Dates: start: 20100604
  4. CEPHALEXIN [Concomitant]
     Dosage: EVERY 12 HOURS
  5. MULTI-VITAMINS [Concomitant]
  6. CALCIUM CARBONATE [Concomitant]
  7. LORATADINE [Concomitant]
     Dosage: EVERY 12 HOURS

REACTIONS (4)
  - DYSPNOEA [None]
  - BONE PAIN [None]
  - INFLAMMATION [None]
  - NASOPHARYNGITIS [None]
